FAERS Safety Report 6621842-8 (Version None)
Quarter: 2010Q1

REPORT INFORMATION
  Report Type: 
  Country: None (occurrence: None)
  Receive Date: 20100223
  Receipt Date: 20091125
  Transmission Date: 20100710
  Serious: No
  Sender: FDA-Public Use
  Company Number: 003689

PATIENT
  Sex: Female
  Weight: 83 kg

DRUGS (10)
  1. CIMZIA [Suspect]
     Indication: CROHN'S DISEASE
     Dosage: (400 MG 1X/MONTH SUBCUTANEOUS)
     Route: 058
     Dates: start: 20090425
  2. CELEXA [Concomitant]
  3. METFORMIN HCL [Concomitant]
  4. LISINOPRIL [Concomitant]
  5. NEXIUM [Concomitant]
  6. ATROPA BELLADONNA W/PHENOBARBITAL [Concomitant]
  7. HYDROCODONE [Concomitant]
  8. SEROQUEL [Concomitant]
  9. LORAZEPAM [Concomitant]
  10. MULTI-VITAMIN [Concomitant]

REACTIONS (5)
  - DIABETIC NEUROPATHY [None]
  - DIZZINESS [None]
  - FALL [None]
  - GINGIVAL PAIN [None]
  - TOOTHACHE [None]
